FAERS Safety Report 6305312-2 (Version None)
Quarter: 2009Q3

REPORT INFORMATION
  Report Type: 
  Country: None (occurrence: None)
  Receive Date: 20090811
  Receipt Date: 20090805
  Transmission Date: 20100115
  Serious: Yes (Death)
  Sender: FDA-Public Use
  Company Number: CN-JNJFOC-20090800370

PATIENT
  Age: 23 Year
  Sex: Male

DRUGS (8)
  1. INVEGA [Suspect]
     Indication: SCHIZOPHRENIA, PARANOID TYPE
     Route: 048
  2. CLOZAPINE [Concomitant]
     Indication: SCHIZOPHRENIA
     Route: 048
  3. OLANZAPINE [Concomitant]
     Route: 048
  4. OLANZAPINE [Concomitant]
     Indication: SCHIZOPHRENIA
     Route: 048
  5. BENZHEXOL HYDROCHLORIDE [Concomitant]
     Indication: SCHIZOPHRENIA, PARANOID TYPE
     Route: 048
  6. CLONAZEPAM [Concomitant]
     Indication: SCHIZOPHRENIA, PARANOID TYPE
     Route: 048
  7. QUETIAPINE FUMARATE [Concomitant]
     Route: 048
  8. QUETIAPINE FUMARATE [Concomitant]
     Indication: SCHIZOPHRENIA
     Route: 048

REACTIONS (2)
  - COMPLETED SUICIDE [None]
  - DRUG INEFFECTIVE [None]
